FAERS Safety Report 6894561-0 (Version None)
Quarter: 2010Q3

REPORT INFORMATION
  Report Type: 
  Country: None (occurrence: None)
  Receive Date: 20100802
  Receipt Date: 20100720
  Transmission Date: 20110219
  Serious: Yes (Other)
  Sender: FDA-Public Use
  Company Number: PHHY2010CA35573

PATIENT

DRUGS (4)
  1. GLEEVEC [Suspect]
     Indication: GASTROINTESTINAL STROMAL TUMOUR
     Dosage: 400 MG, DAILY
     Route: 048
     Dates: start: 20090702, end: 20090901
  2. GLEEVEC [Suspect]
     Dosage: 800 MG, DAILY
     Route: 048
     Dates: start: 20090923, end: 20100201
  3. SUTENT [Concomitant]
     Dosage: UNK
     Dates: start: 20100202
  4. ANALGESICS [Concomitant]

REACTIONS (15)
  - ABDOMINAL MASS [None]
  - ABDOMINAL PAIN [None]
  - ABDOMINAL TENDERNESS [None]
  - BLADDER DYSFUNCTION [None]
  - DRUG INEFFECTIVE [None]
  - DRUG TOXICITY [None]
  - EATING DISORDER [None]
  - FLUID INTAKE REDUCED [None]
  - GASTROINTESTINAL STROMAL TUMOUR [None]
  - INTESTINAL FUNCTIONAL DISORDER [None]
  - MALIGNANT NEOPLASM PROGRESSION [None]
  - METASTASIS [None]
  - PAIN [None]
  - PAINFUL DEFAECATION [None]
  - WEIGHT DECREASED [None]
